FAERS Safety Report 8516858-0 (Version None)
Quarter: 2012Q2

REPORT INFORMATION
  Report Type: 
  Country: None (occurrence: None)
  Receive Date: 20120406
  Receipt Date: 20091208
  Transmission Date: 20120825
  Serious: Yes (Hospitalization)
  Sender: FDA-Public Use
  Company Number: PHHY2009US54412

PATIENT
  Sex: Female

DRUGS (3)
  1. ANALGESICS (NO INGREDIENTS/SUBSTANCES) [Concomitant]
  2. TASIGNA [Suspect]
     Indication: CHRONIC MYELOID LEUKAEMIA
     Dosage: 400 MG, BID, ORAL, 400 MG, BID
     Route: 048
  3. UNSPECIFIED MEDICATION FOR BIPOLAR [Concomitant]

REACTIONS (3)
  - DIABETES MELLITUS [None]
  - PNEUMONIA [None]
  - RASH [None]
